FAERS Safety Report 11730322 (Version 8)
Quarter: 2019Q4

REPORT INFORMATION
  Report Type: Spontaneous
  Country: FR (occurrence: FR)
  Receive Date: 20151112
  Receipt Date: 20191104
  Transmission Date: 20200122
  Serious: Yes (Hospitalization, Congenital Anomaly, Other)
  Sender: FDA-Public Use
  Company Number: FR-ABBVIE-15P-056-1499029-00

PATIENT
  Age: 15 Year
  Sex: Male

DRUGS (1)
  1. DEPAKINE [Suspect]
     Active Substance: VALPROATE SODIUM
     Indication: MATERNAL EXPOSURE TIMING UNSPECIFIED
     Route: 064
     Dates: start: 19970920, end: 19980606

REACTIONS (80)
  - Mitral valve incompetence [Not Recovered/Not Resolved]
  - Dyskinesia [Unknown]
  - Spine malformation [Unknown]
  - Anxiety [Unknown]
  - Congenital infection [Recovered/Resolved]
  - Foetal exposure during pregnancy [Unknown]
  - Adenoidectomy [Unknown]
  - Encephalopathy neonatal [Not Recovered/Not Resolved]
  - Nasopharyngitis [Recovered/Resolved]
  - Partner stress [Unknown]
  - C-reactive protein increased [Unknown]
  - Prominent epicanthal folds [Unknown]
  - Dysmorphism [Not Recovered/Not Resolved]
  - Unevaluable event [Unknown]
  - Encephalopathy [Unknown]
  - Rhinitis [Unknown]
  - Rhinitis [Recovered/Resolved]
  - Congenital heart valve disorder [Not Recovered/Not Resolved]
  - Autism spectrum disorder [Not Recovered/Not Resolved]
  - Febrile convulsion [Unknown]
  - Speech disorder developmental [Unknown]
  - Bruxism [Unknown]
  - Dyspraxia [Unknown]
  - Tracheitis [Unknown]
  - Myringitis [Unknown]
  - Nasopharyngitis [Unknown]
  - Astigmatism [Not Recovered/Not Resolved]
  - Bone lesion [Unknown]
  - Ligament laxity [Unknown]
  - Intellectual disability [Unknown]
  - Arthritis [Unknown]
  - Developmental coordination disorder [Unknown]
  - Ear infection [Unknown]
  - Talipes [Unknown]
  - Foetal anticonvulsant syndrome [Unknown]
  - Constipation [Not Recovered/Not Resolved]
  - Musculoskeletal stiffness [Unknown]
  - Fall [Unknown]
  - Otitis media [Unknown]
  - Blood thyroid stimulating hormone increased [Unknown]
  - Language disorder [Unknown]
  - Muscle tone disorder [Unknown]
  - Gait disturbance [Unknown]
  - Congenital scoliosis [Unknown]
  - Visual impairment [Unknown]
  - Behaviour disorder [Unknown]
  - Behaviour disorder [Recovering/Resolving]
  - Ear malformation [Unknown]
  - Arnold-Chiari malformation [Unknown]
  - Developmental delay [Not Recovered/Not Resolved]
  - Faecaloma [Recovered/Resolved]
  - Epilepsy [Recovered/Resolved]
  - Social problem [Unknown]
  - Lordosis [Unknown]
  - Disorientation [Unknown]
  - Hypotonia [Unknown]
  - Ear disorder [Recovered/Resolved]
  - Nasal disorder [Recovered/Resolved]
  - Aggression [Unknown]
  - Psychomotor hyperactivity [Unknown]
  - Congenital oral malformation [Unknown]
  - Hypermobility syndrome [Not Recovered/Not Resolved]
  - Mitral valve prolapse [Not Recovered/Not Resolved]
  - Cognitive disorder [Unknown]
  - Incontinence [Unknown]
  - Emotional distress [Unknown]
  - Coordination abnormal [Unknown]
  - Motor dysfunction [Unknown]
  - Acalculia [Unknown]
  - Mental disorder [Unknown]
  - Multiple congenital abnormalities [Unknown]
  - Gastrointestinal disorder congenital [Recovered/Resolved]
  - Intestinal obstruction [Recovered/Resolved]
  - Amyotrophy [Not Recovered/Not Resolved]
  - Enuresis [Unknown]
  - Oropharyngeal discomfort [Recovered/Resolved]
  - Intestinal obstruction [Not Recovered/Not Resolved]
  - Executive dysfunction [Unknown]
  - Disturbance in attention [Unknown]
  - Limb malformation [Unknown]

NARRATIVE: CASE EVENT DATE: 1999
